FAERS Safety Report 4465464-6 (Version None)
Quarter: 2004Q4

REPORT INFORMATION
  Report Type: 
  Country: None (occurrence: None)
  Receive Date: 20041004
  Receipt Date: 20040928
  Transmission Date: 20050328
  Serious: Yes (Hospitalization, Other)
  Sender: FDA-Public Use
  Company Number: PHBS2004JP13008

PATIENT
  Age: 54 Year
  Sex: Male

DRUGS (1)
  1. LAMISIL [Suspect]
     Indication: NAIL TINEA

REACTIONS (3)
  - DYSPNOEA [None]
  - LIVER DISORDER [None]
  - STEVENS-JOHNSON SYNDROME [None]
